FAERS Safety Report 6677715-8 (Version None)
Quarter: 2010Q2

REPORT INFORMATION
  Report Type: 
  Country: None (occurrence: None)
  Receive Date: 20100412
  Receipt Date: 20100106
  Transmission Date: 20101027
  Serious: No
  Sender: FDA-Public Use
  Company Number: US-ALEXION-A200901127

PATIENT
  Sex: Male

DRUGS (16)
  1. SOLIRIS [Suspect]
     Indication: PAROXYSMAL NOCTURNAL HAEMOGLOBINURIA
     Dosage: 600 MG, UNK
     Route: 042
     Dates: start: 20091110
  2. SOLIRIS [Suspect]
     Dosage: 600 MG, UNK
     Dates: start: 20091228
  3. ACYCLOVIR [Concomitant]
     Dosage: 1 TABLET TID
     Route: 048
     Dates: start: 20090924
  4. CELEXA [Concomitant]
     Dosage: 10 MG, QD
     Route: 048
     Dates: start: 20091207
  5. CHLORHEXIDINE GLUCONATE [Concomitant]
     Dosage: 5 ML, BID
     Route: 048
     Dates: start: 20091030
  6. DEXAMETHASONE [Concomitant]
     Dosage: 4 MG, QOD
     Route: 048
     Dates: start: 20091226
  7. DOXYCYCLINE HYCLATE [Concomitant]
     Dosage: 50 MG, BID
     Route: 048
     Dates: start: 20090810
  8. FOLIC ACID [Concomitant]
     Dosage: 1 MG, QD
     Route: 048
     Dates: start: 20060203
  9. HYDRALAZINE HCL [Concomitant]
     Dosage: 25 MG, EVERY MORNING
     Route: 048
     Dates: start: 20091116
  10. METOPROLOL TARTRATE [Concomitant]
     Dosage: 1 TABLET
     Route: 048
     Dates: start: 20091223
  11. TARCEVA                            /01611401/ [Concomitant]
     Dosage: 150 MG, QD
     Route: 048
     Dates: start: 20090713
  12. INDOMETHACIN [Concomitant]
     Indication: PAIN
     Dosage: 25 MG, TID PRN
     Dates: start: 20090629
  13. LEVAQUIN [Concomitant]
     Dosage: 500 MG, QD PRN
     Route: 048
     Dates: start: 20090521
  14. LORAZEPAM [Concomitant]
     Dosage: TAKE 0.5 TO 1 TABLET Q6-8H PRN
     Dates: start: 20091207
  15. TYLENOL (CAPLET) [Concomitant]
     Dosage: 500 MG, Q4-6H PRN
     Route: 048
  16. ZANTAC                             /00550802/ [Concomitant]
     Dosage: 75 MG, BID PRN
     Route: 048
     Dates: start: 20090919

REACTIONS (2)
  - DIARRHOEA [None]
  - HEADACHE [None]
